FAERS Safety Report 13102150 (Version 4)
Quarter: 2017Q2

REPORT INFORMATION
  Report Type: Spontaneous
  Country: US (occurrence: US)
  Receive Date: 20170110
  Receipt Date: 20170407
  Transmission Date: 20170830
  Serious: No
  Sender: FDA-Public Use
  Company Number: US-JNJFOC-20170106145

PATIENT
  Age: 30 Year
  Sex: Male
  Weight: 65 kg

DRUGS (2)
  1. STELARA [Suspect]
     Active Substance: USTEKINUMAB
     Indication: CROHN^S DISEASE
     Route: 042
     Dates: start: 20170104
  2. STELARA [Suspect]
     Active Substance: USTEKINUMAB
     Indication: CROHN^S DISEASE
     Route: 042

REACTIONS (6)
  - Hyperhidrosis [Recovered/Resolved]
  - Pallor [Recovered/Resolved]
  - Nausea [Recovered/Resolved]
  - Sensation of foreign body [Recovered/Resolved]
  - Underdose [Unknown]
  - Infusion related reaction [Recovered/Resolved]

NARRATIVE: CASE EVENT DATE: 20170104
